FAERS Safety Report 6987916 (Version 28)
Quarter: 2014Q1

REPORT INFORMATION
  Report Type: Spontaneous
  Country: US (occurrence: US)
  Receive Date: 20090506
  Receipt Date: 20140120
  Transmission Date: 20141002
  Serious: Yes (Hospitalization, Other)
  Sender: FDA-Public Use
  Company Number: PHEH2009US04183

PATIENT
  Age: 72 Year
  Sex: Female

DRUGS (51)
  1. AREDIA [Suspect]
     Indication: METASTASES TO BONE
     Dosage: 90 MG
     Route: 042
     Dates: start: 20000417, end: 20060915
  2. AREDIA [Suspect]
     Indication: OSTEOPOROSIS
  3. AREDIA [Suspect]
     Indication: OSTEITIS DEFORMANS
  4. AREDIA [Suspect]
     Indication: BREAST CANCER METASTATIC
  5. ZOMETA [Suspect]
     Route: 042
  6. FOSAMAX [Suspect]
     Indication: OSTEOPOROSIS
  7. FOSAMAX [Suspect]
     Indication: OSTEITIS DEFORMANS
  8. TYLOX [Concomitant]
  9. ZOLOFT (SERTRALINE HYDROCHLORIDE) [Concomitant]
  10. SYNTHROID [Concomitant]
  11. MAVIK [Concomitant]
  12. PHENERGAN ^AVENTIS PHARMA^ [Concomitant]
  13. OXYCONTIN [Concomitant]
  14. AMBIEN [Concomitant]
  15. LOMOTIL [Concomitant]
  16. AMARYL [Concomitant]
  17. NOLVADEX ^ASTRAZENECA^ [Concomitant]
  18. HYDROCODONE [Concomitant]
  19. INSULIN [Concomitant]
  20. MORPHINE [Concomitant]
     Dosage: 25 MG/ML, UNK
     Route: 037
  21. STEROIDS NOS [Concomitant]
     Route: 065
  22. LIDOCAINE [Concomitant]
     Route: 065
  23. DEPO-MEDROL [Concomitant]
     Route: 065
  24. LORTAB [Concomitant]
     Dosage: 10 MG, PRN
     Route: 048
  25. BEXTRA [Concomitant]
     Dosage: 10 MG, BID
     Route: 048
  26. PERCOCET [Concomitant]
  27. TRICOR [Concomitant]
  28. LASIX [Concomitant]
  29. AROMASIN [Concomitant]
     Indication: BREAST CANCER
  30. REGLAN                                  /USA/ [Concomitant]
  31. ZANTAC [Concomitant]
  32. CEFAZOLIN [Concomitant]
     Route: 041
  33. FLEXERIL [Concomitant]
  34. MECLIZINE [Concomitant]
     Dosage: 25 MG, TID
     Route: 048
  35. SINGULAIR [Concomitant]
     Dosage: 10 MG, QHS
     Route: 048
  36. DOCUSATE [Concomitant]
     Dosage: 100 MG, QD
     Route: 048
  37. HUMULIN [Concomitant]
     Dosage: 15 U, QHS
     Route: 058
  38. CIPRO ^MILES^ [Concomitant]
     Dosage: 500 MG, BID
     Route: 048
  39. POTASSIUM CHLORIDE [Concomitant]
  40. NPH-INSULIN [Concomitant]
     Dosage: 15 U, QHS
     Route: 058
  41. NPH-INSULIN [Concomitant]
     Dosage: 20 U, QD
     Route: 058
  42. MYCOSTATIN [Concomitant]
     Route: 061
  43. LOVENOX [Concomitant]
     Dosage: 40 MG, QD
     Route: 058
  44. ZESTRIL [Concomitant]
     Dosage: 10 MG, QD
     Route: 048
  45. TAMOXIFEN [Concomitant]
  46. ARIMIDEX ^ZENECA^ [Concomitant]
  47. ABILIFY [Concomitant]
  48. ZYPREXA [Concomitant]
  49. FENTANYL [Concomitant]
  50. XANAX [Concomitant]
  51. RESTORIL [Concomitant]
     Dosage: 7.5 MG, DAILY

REACTIONS (174)
  - Confusional state [Unknown]
  - Hallucination [Unknown]
  - Osteonecrosis of jaw [Recovering/Resolving]
  - Jaw disorder [Unknown]
  - Injury [Unknown]
  - Pain [Unknown]
  - Emotional distress [Unknown]
  - Anxiety [Unknown]
  - Anhedonia [Unknown]
  - Bone swelling [Unknown]
  - Tooth loss [Unknown]
  - Condition aggravated [Unknown]
  - Neck pain [Unknown]
  - Osteoarthritis [Unknown]
  - Kyphoscoliosis [Unknown]
  - Peripheral vascular disorder [Unknown]
  - Cholelithiasis [Unknown]
  - Nephrolithiasis [Unknown]
  - Adrenal mass [Unknown]
  - Adrenal adenoma [Unknown]
  - Abdominal pain [Unknown]
  - Back pain [Unknown]
  - Oedema peripheral [Unknown]
  - Cellulitis [Recovering/Resolving]
  - Osteomyelitis [Unknown]
  - Infection [Unknown]
  - Dizziness [Unknown]
  - Vertigo [Unknown]
  - Fibula fracture [Recovering/Resolving]
  - Foot fracture [Unknown]
  - Macular degeneration [Unknown]
  - Cataract [Unknown]
  - Erythema [Unknown]
  - Stasis dermatitis [Unknown]
  - Fall [Recovering/Resolving]
  - Laceration [Recovering/Resolving]
  - Chronic sinusitis [Unknown]
  - Skeletal injury [Unknown]
  - Intervertebral disc protrusion [Unknown]
  - Ankle fracture [Unknown]
  - Rhinitis allergic [Unknown]
  - Malaise [Unknown]
  - Asthenia [Unknown]
  - Pain in extremity [Not Recovered/Not Resolved]
  - Depression [Unknown]
  - Skin ulcer [Unknown]
  - Contusion [Unknown]
  - Insomnia [Unknown]
  - Cyclothymic disorder [Unknown]
  - Metastases to spine [Unknown]
  - Lack of spontaneous speech [Unknown]
  - Mood altered [Unknown]
  - Drug dependence [Unknown]
  - Dysthymic disorder [Unknown]
  - Dyslipidaemia [Unknown]
  - Deep vein thrombosis [Unknown]
  - Diabetic retinopathy [Unknown]
  - Open angle glaucoma [Unknown]
  - Haematuria [Unknown]
  - Arteriosclerosis [Unknown]
  - Cerebral atrophy [Unknown]
  - Groin pain [Unknown]
  - Haematoma [Unknown]
  - Migraine [Unknown]
  - Retinopathy hypertensive [Unknown]
  - Eyelid ptosis [Unknown]
  - Gait disturbance [Unknown]
  - Intervertebral disc degeneration [Unknown]
  - Chest pain [Unknown]
  - Venous insufficiency [Unknown]
  - Intervertebral disc displacement [Unknown]
  - Rotator cuff syndrome [Unknown]
  - Cardiomegaly [Unknown]
  - Lung infiltration [Unknown]
  - Vertebral foraminal stenosis [Unknown]
  - Lumbar spinal stenosis [Unknown]
  - Hiatus hernia [Unknown]
  - Aortic dilatation [Unknown]
  - Pneumonia [Unknown]
  - Tremor [Unknown]
  - Age-related macular degeneration [Unknown]
  - Arthralgia [Unknown]
  - Exposed bone in jaw [Unknown]
  - Poor dental condition [Unknown]
  - Loose tooth [Unknown]
  - Gingival hyperplasia [Unknown]
  - Right ventricular failure [Unknown]
  - Intervertebral disc space narrowing [Unknown]
  - Exostosis [Unknown]
  - Cerebellar atrophy [Unknown]
  - Lung hyperinflation [Unknown]
  - Atelectasis [Unknown]
  - Rib fracture [Unknown]
  - Emphysema [Unknown]
  - Urinary incontinence [Unknown]
  - Dyspnoea [Unknown]
  - Hypercholesterolaemia [Unknown]
  - Urinary tract infection [Unknown]
  - Dysuria [Unknown]
  - Oliguria [Unknown]
  - Pleural fibrosis [Unknown]
  - Cerumen impaction [Unknown]
  - Orthostatic hypotension [Unknown]
  - Dental fistula [Unknown]
  - Impaired healing [Unknown]
  - Osteolysis [Unknown]
  - Submandibular mass [Unknown]
  - Polyp [Unknown]
  - Swelling [Unknown]
  - Kyphosis [Unknown]
  - Dehydration [Unknown]
  - Tooth fracture [Unknown]
  - Dental caries [Unknown]
  - Periodontal disease [Unknown]
  - Foot deformity [Unknown]
  - Bronchitis [Unknown]
  - Hearing impaired [Unknown]
  - Spinal osteoarthritis [Unknown]
  - Pleural effusion [Unknown]
  - Productive cough [Unknown]
  - Upper-airway cough syndrome [Unknown]
  - Constipation [Unknown]
  - Dysphagia [Unknown]
  - Tibia fracture [Unknown]
  - Hyperkeratosis [Unknown]
  - Joint range of motion decreased [Unknown]
  - Telangiectasia [Unknown]
  - Nail dystrophy [Unknown]
  - Oedema [Unknown]
  - Onychomycosis [Unknown]
  - Excoriation [Unknown]
  - Peripheral arterial occlusive disease [Unknown]
  - Arthritis [Unknown]
  - Scoliosis [Unknown]
  - Diabetic foot [Unknown]
  - Osteosclerosis [Unknown]
  - Arterial insufficiency [Unknown]
  - Varicose vein [Unknown]
  - Xerosis [Unknown]
  - Mental status changes [Unknown]
  - Cerebral small vessel ischaemic disease [Unknown]
  - Metastases to lymph nodes [Unknown]
  - Swelling face [Unknown]
  - Pain in jaw [Unknown]
  - Respiratory failure [Unknown]
  - Renal failure [Unknown]
  - Malignant hypertension [Unknown]
  - Coordination abnormal [Unknown]
  - Visual impairment [Unknown]
  - Dementia [Unknown]
  - Upper respiratory tract infection [Unknown]
  - Cardiac disorder [Unknown]
  - Sacroiliitis [Unknown]
  - Amnesia [Unknown]
  - Decubitus ulcer [Unknown]
  - Vascular calcification [Unknown]
  - Aortic arteriosclerosis [Unknown]
  - Pulmonary oedema [Unknown]
  - Acute myocardial infarction [Unknown]
  - Cerebrovascular accident [Unknown]
  - Cardiac failure congestive [Unknown]
  - Psychotic disorder [Unknown]
  - Nausea [Unknown]
  - Visual acuity reduced [Unknown]
  - Vitreous detachment [Unknown]
  - Macular scar [Unknown]
  - Joint crepitation [Unknown]
  - Ecchymosis [Unknown]
  - Ingrowing nail [Unknown]
  - Paronychia [Unknown]
  - Neuropathic arthropathy [Unknown]
  - Purulent discharge [Unknown]
  - Metatarsalgia [Unknown]
  - Blister [Unknown]
